FAERS Safety Report 7279264-5 (Version None)
Quarter: 2011Q1

REPORT INFORMATION
  Report Type: 
  Country: None (occurrence: None)
  Receive Date: 20110207
  Receipt Date: 20110202
  Transmission Date: 20110831
  Serious: Yes (Other)
  Sender: FDA-Public Use
  Company Number: US-PFIZER INC-2011024442

PATIENT
  Sex: Female
  Weight: 70.295 kg

DRUGS (8)
  1. GABAPENTIN [Suspect]
     Indication: NEUROPATHY PERIPHERAL
     Dosage: 600 MG, 3X/DAY
     Route: 048
  2. DIOVAN HCT [Concomitant]
     Indication: HYPERTENSION
     Dosage: 160/12.5 MG DAILY
     Route: 048
  3. METOPROLOL [Concomitant]
     Indication: HYPERTENSION
     Dosage: 50 MG, 2X/DAY
     Route: 048
  4. ACETYLSALICYLIC ACID [Concomitant]
     Indication: CARDIAC DISORDER
     Dosage: HALF TABLET DAILY
     Route: 048
  5. PREMARIN [Concomitant]
     Indication: SWEAT GLAND DISORDER
     Dosage: 40 MG, AS NEEDED
     Route: 048
  6. LIPITOR [Concomitant]
     Indication: BLOOD CHOLESTEROL INCREASED
     Dosage: 10 MG, 1X/DAY
     Route: 048
  7. MULTIVITAMIN [Concomitant]
     Dosage: UNK
  8. ALEVE [Concomitant]
     Indication: OSTEOARTHRITIS
     Dosage: UNK
     Route: 048

REACTIONS (7)
  - IMPAIRED DRIVING ABILITY [None]
  - DRUG INEFFECTIVE [None]
  - DRUG INTOLERANCE [None]
  - DYSGEUSIA [None]
  - MENTAL IMPAIRMENT [None]
  - GLUCOSE TOLERANCE IMPAIRED [None]
  - FEELING ABNORMAL [None]
